FAERS Safety Report 4424365-X (Version None)
Quarter: 2004Q3

REPORT INFORMATION
  Report Type: 
  Country: None (occurrence: None)
  Receive Date: 20040812
  Receipt Date: 20040727
  Transmission Date: 20050211
  Serious: Yes (Disabling)
  Sender: FDA-Public Use
  Company Number: GB-MERCK-0407GBR00269

PATIENT
  Age: 69 Year
  Sex: Female
  Weight: 66 kg

DRUGS (7)
  1. FOSAMAX [Suspect]
     Indication: OSTEOPOROSIS
     Route: 048
     Dates: end: 20040501
  2. FOSAMAX [Suspect]
     Route: 048
     Dates: start: 20040601, end: 20040601
  3. FOSAMAX [Suspect]
     Route: 048
     Dates: start: 20040701, end: 20040722
  4. FOSAMAX [Suspect]
     Route: 048
     Dates: start: 19990101
  5. CALCIUM (UNSPECIFIED) [Concomitant]
     Route: 065
  6. COD LIVER OIL [Concomitant]
     Route: 065
  7. SIMVASTATIN [Concomitant]
     Route: 065

REACTIONS (6)
  - BONE PAIN [None]
  - HYPOKINESIA [None]
  - OEDEMA PERIPHERAL [None]
  - PAIN IN EXTREMITY [None]
  - STOMACH DISCOMFORT [None]
  - WRIST FRACTURE [None]
